FAERS Safety Report 5690094-8 (Version None)
Quarter: 2008Q1

REPORT INFORMATION
  Report Type: 
  Country: None (occurrence: None)
  Receive Date: 20080331
  Receipt Date: 20080331
  Transmission Date: 20080703
  Serious: Yes (Life-Threatening, Other)
  Sender: FDA-Public Use
  Company Number: None

PATIENT
  Age: 54 Year
  Sex: Female

DRUGS (5)
  1. ACCUTANE [Suspect]
     Dosage: 10MG ONCE A DAY ORALLY
     Route: 048
  2. VITAMIN B [Concomitant]
  3. FLEXEROL [Concomitant]
  4. ALDACTONE [Concomitant]
  5. PROSOL [Concomitant]

REACTIONS (7)
  - COLOUR BLINDNESS [None]
  - DIARRHOEA [None]
  - HEADACHE [None]
  - NAUSEA [None]
  - PHARMACEUTICAL PRODUCT COMPLAINT [None]
  - VISION BLURRED [None]
  - VOMITING [None]
